FAERS Safety Report 5447170-4 (Version None)
Quarter: 2007Q3

REPORT INFORMATION
  Report Type: 
  Country: None (occurrence: None)
  Receive Date: 20070910
  Receipt Date: 20070830
  Transmission Date: 20080115
  Serious: Yes (Hospitalization, Other)
  Sender: FDA-Public Use
  Company Number: PHEH2007US11866

PATIENT
  Sex: Male

DRUGS (2)
  1. METOPROLOL TARTRATE [Suspect]
     Indication: CARDIAC DISORDER
  2. SPIRONOLACTONE [Suspect]
     Indication: HYPERTENSION

REACTIONS (1)
  - CARDIAC OPERATION [None]
